FAERS Safety Report 15256546 (Version 1)
Quarter: 2018Q3

REPORT INFORMATION
  Report Type: Other
  Country: US (occurrence: US)
  Receive Date: 20180808
  Receipt Date: 20180808
  Transmission Date: 20181010
  Serious: No
  Sender: FDA-Public Use
  Company Number: US-MIKART, INC.-2053462

PATIENT
  Age: 60 Year
  Sex: Male

DRUGS (1)
  1. HYDROCODONE BITARTRATE AND ACETAMINOPHEN [Suspect]
     Active Substance: ACETAMINOPHEN\HYDROCODONE BITARTRATE

REACTIONS (5)
  - Panic attack [Unknown]
  - Vomiting [Unknown]
  - Restlessness [Unknown]
  - Cough [Unknown]
  - Insomnia [Unknown]
